FAERS Safety Report 6677353-7 (Version None)
Quarter: 2010Q2

REPORT INFORMATION
  Report Type: 
  Country: None (occurrence: None)
  Receive Date: 20100412
  Receipt Date: 20100409
  Transmission Date: 20101027
  Serious: Yes (Life-Threatening, Hospitalization)
  Sender: FDA-Public Use
  Company Number: GXKR2010DE01274

PATIENT
  Age: 70 Year
  Sex: Female
  Weight: 70 kg

DRUGS (15)
  1. ENALAPRIL MALEATE [Suspect]
     Indication: HYPERTENSION
     Dosage: 10 MG, QD
     Route: 048
     Dates: end: 20090802
  2. TORSEMIDE [Suspect]
     Indication: HYPERTENSION
     Dosage: 10 MG, QD
     Route: 048
     Dates: end: 20090804
  3. BISOPROLOL FUMARATE AND HYDROCHLOROTHIAZIDE [Suspect]
     Indication: HYPERTENSION
     Dosage: 1 DF, QD
     Route: 048
     Dates: end: 20090802
  4. SPIRONOLACTONE [Suspect]
     Dosage: 25 MG, QD
     Route: 048
     Dates: end: 20090802
  5. DOXAZOSIN MESYLATE [Suspect]
     Indication: HYPERTENSION
     Dosage: 4 MG, QD
     Route: 048
  6. VENLAFAXINE HCL [Suspect]
     Dosage: 37.5 MG, BID
     Route: 048
  7. DICLOFENAC (NGX) [Suspect]
     Indication: PAIN
     Dosage: 50 MG, QD
     Route: 048
     Dates: end: 20090802
  8. ENEAS [Suspect]
     Indication: HYPERTENSION
     Dosage: 1 DF, QD
     Route: 048
     Dates: end: 20090802
  9. DIGITOXIN TAB [Interacting]
     Dosage: 0.75 MG, QD
     Route: 048
  10. METFORMIN HCL [Concomitant]
  11. XALATAN [Concomitant]
  12. ACTRAPID INSULIN NOVO [Concomitant]
  13. LANTUS [Concomitant]
  14. ACETYLSALICYLIC ACID [Concomitant]
  15. NIASPAN [Concomitant]

REACTIONS (2)
  - BICYTOPENIA [None]
  - RENAL FAILURE ACUTE [None]
